FAERS Safety Report 24838101 (Version 1)
Quarter: 2025Q1

REPORT INFORMATION
  Report Type: Spontaneous
  Country: CN (occurrence: CN)
  Receive Date: 20250113
  Receipt Date: 20250113
  Transmission Date: 20250409
  Serious: Yes (Hospitalization, Other)
  Sender: PFIZER
  Company Number: CN-PFIZER INC-PV202500004002

PATIENT
  Age: 30 Year
  Sex: Female

DRUGS (1)
  1. TIGECYCLINE [Suspect]
     Active Substance: TIGECYCLINE
     Indication: Infection
     Dosage: 50 MG, 2X/DAY
     Route: 041
     Dates: start: 20241210, end: 20241213

REACTIONS (2)
  - Coagulopathy [Not Recovered/Not Resolved]
  - Gastrointestinal haemorrhage [Not Recovered/Not Resolved]

NARRATIVE: CASE EVENT DATE: 20241213
